FAERS Safety Report 9437489 (Version 1)
Quarter: 2013Q3

REPORT INFORMATION
  Report Type: Spontaneous
  Country: GB (occurrence: None)
  Receive Date: 20130731
  Receipt Date: 20130731
  Transmission Date: 20140515
  Serious: Yes (Hospitalization, Other)
  Sender: FDA-Public Use
  Company Number: AUR-APL-2013-06217

PATIENT
  Age: 92 Year
  Sex: Male
  Weight: 69 kg

DRUGS (4)
  1. CITALOPRAM [Suspect]
     Indication: DEPRESSION
     Route: 048
     Dates: start: 20130627, end: 20130701
  2. ASPIRIN (ACETYLSALICYLIC ACID) [Concomitant]
  3. FELODIPINE (FELODIPINE) [Concomitant]
  4. OMEPRAZOLE (OMEPRAZOLE) [Concomitant]

REACTIONS (3)
  - Confusional state [None]
  - Hallucination [None]
  - Abnormal dreams [None]
